FAERS Safety Report 18584480 (Version 3)
Quarter: 2020Q4

REPORT INFORMATION
  Report Type: Spontaneous
  Country: BR (occurrence: BR)
  Receive Date: 20201207
  Receipt Date: 20201228
  Transmission Date: 20210114
  Serious: Yes (Other)
  Sender: FDA-Public Use
  Company Number: BR-GE HEALTHCARE LIFE SCIENCES-2020CSU006044

PATIENT

DRUGS (4)
  1. OMNIPAQUE [Suspect]
     Active Substance: IOHEXOL
     Indication: CHEMOTHERAPY
  2. OMNIPAQUE [Suspect]
     Active Substance: IOHEXOL
     Indication: COMPUTERISED TOMOGRAM NECK
     Dosage: 70 ML BY INJECTOR FOR A DURATION OF 52 SEC., SINGLE
     Route: 042
     Dates: start: 20201110, end: 20201110
  3. OMNIPAQUE [Suspect]
     Active Substance: IOHEXOL
     Indication: LARYNGEAL NEOPLASM
  4. OMNIPAQUE [Suspect]
     Active Substance: IOHEXOL
     Indication: RADIOTHERAPY

REACTIONS (1)
  - Intravascular gas [Recovered/Resolved]

NARRATIVE: CASE EVENT DATE: 20201110
